FAERS Safety Report 17915505 (Version 2)
Quarter: 2020Q4

REPORT INFORMATION
  Report Type: Report from Study
  Country: US (occurrence: US)
  Receive Date: 20200619
  Receipt Date: 20201116
  Transmission Date: 20210113
  Serious: No
  Sender: FDA-Public Use
  Company Number: US-IPSEN BIOPHARMACEUTICALS, INC.-2020-10650

PATIENT
  Age: 16 Year
  Sex: Male
  Weight: 51.1 kg

DRUGS (13)
  1. SENNA [Concomitant]
     Active Substance: SENNA LEAF\SENNOSIDES\SENNOSIDES A AND B
     Indication: CONSTIPATION
     Dosage: PRN AS NEEDED
     Dates: start: 20190628
  2. CLONIDINE. [Concomitant]
     Active Substance: CLONIDINE
     Indication: PROCEDURAL PAIN
     Dates: start: 20190411, end: 20190415
  3. DYSPORT [Suspect]
     Active Substance: ABOBOTULINUMTOXINA
     Indication: MUSCLE SPASTICITY
     Dosage: 100 IU
     Route: 030
     Dates: start: 20171228, end: 20171228
  4. DIAZEPAM. [Concomitant]
     Active Substance: DIAZEPAM
     Indication: SEIZURE
     Dosage: 10 MG PNR AS NEEDED
     Route: 054
  5. IBU PROFEN [Concomitant]
     Indication: PAIN
     Dosage: PRN AS NEEDED
     Dates: start: 20190628
  6. DOCUSATE [Concomitant]
     Active Substance: DOCUSATE
     Indication: CONSTIPATION
     Dosage: PRN AS NEEDED
     Route: 054
     Dates: start: 20190628
  7. MIRALAX [Concomitant]
     Active Substance: POLYETHYLENE GLYCOL 3350
     Indication: CONSTIPATION
     Dosage: PRN AS NEEDED
     Dates: start: 20190628
  8. VISTARIL [Concomitant]
     Active Substance: HYDROXYZINE PAMOATE
     Indication: MUSCLE SPASMS
     Dosage: PRN AS NEEDED
     Dates: start: 20190416, end: 20190628
  9. ACETAMINOPHEN. [Concomitant]
     Active Substance: ACETAMINOPHEN
     Indication: PROCEDURAL PAIN
     Dosage: PRN AS NEEDED
     Dates: start: 20190411, end: 20190821
  10. BACLOFEN. [Concomitant]
     Active Substance: BACLOFEN
     Indication: MUSCLE SPASTICITY
     Dosage: 5 MG
     Dates: start: 20171102
  11. DIAZEPAM. [Concomitant]
     Active Substance: DIAZEPAM
     Indication: MUSCLE SPASMS
     Dosage: PRN AS NEEDED
     Dates: start: 20190411, end: 20190821
  12. OXYCODONE [Concomitant]
     Active Substance: OXYCODONE
     Indication: PROCEDURAL PAIN
     Dosage: PRN AS NEEDED
     Dates: start: 20190416, end: 20190628
  13. HYDROMORPHONE [Concomitant]
     Active Substance: HYDROMORPHONE
     Indication: PROCEDURAL PAIN
     Dosage: PRN AS NEEDED
     Dates: start: 20190411, end: 20190412

REACTIONS (1)
  - Muscle spasms [Not Recovered/Not Resolved]

NARRATIVE: CASE EVENT DATE: 20191201
